FAERS Safety Report 10724292 (Version 1)
Quarter: 2015Q1

REPORT INFORMATION
  Report Type: Spontaneous
  Country: US (occurrence: US)
  Receive Date: 20150120
  Receipt Date: 20150120
  Transmission Date: 20150721
  Serious: Yes (Disabling, Other)
  Sender: FDA-Public Use
  Company Number: US-PFIZER INC-2015013423

PATIENT
  Age: 30 Year
  Sex: Female
  Weight: 78.91 kg

DRUGS (12)
  1. CYMBALTA [Concomitant]
     Active Substance: DULOXETINE HYDROCHLORIDE
     Indication: PAIN
     Dosage: 90 MG, DAILY (USE AS DIRECTED)
     Route: 048
  2. BUSPIRONE HYDROCHLORIDE. [Concomitant]
     Active Substance: BUSPIRONE HYDROCHLORIDE
     Dosage: 15 MG, 2X/DAY
  3. LYRICA [Suspect]
     Active Substance: PREGABALIN
     Indication: FIBROMYALGIA
     Dosage: 100 MG, 2X/DAY (AS DIRECTED)
     Route: 048
  4. RHODIOLA [Concomitant]
     Active Substance: HERBALS
     Dosage: 300 MG, UNK
  5. CYMBALTA [Concomitant]
     Active Substance: DULOXETINE HYDROCHLORIDE
     Dosage: )60 MG, DAILY (USE AS DIRECTED)
     Route: 048
  6. TEMAZEPAM. [Concomitant]
     Active Substance: TEMAZEPAM
     Dosage: 15 MG, 1X/DAY (QHS)
  7. BACLOFEN. [Concomitant]
     Active Substance: BACLOFEN
     Indication: PAIN
     Dosage: 10 MG, 3X/DAY
  8. STERAPRED [Concomitant]
     Active Substance: PREDNISONE
     Dosage: 5 MG, UNK
  9. TRAZODONE HYDROCHLORIDE. [Concomitant]
     Active Substance: TRAZODONE HYDROCHLORIDE
     Dosage: 50 MG, UNK (USE AS DIRECTED)
  10. LYRICA [Suspect]
     Active Substance: PREGABALIN
     Indication: NERVOUS SYSTEM DISORDER
  11. HYDROXYZINE PAMOATE. [Concomitant]
     Active Substance: HYDROXYZINE PAMOATE
     Dosage: 25 MG, 1X/DAY (QHS)
  12. SPIRONOLACTONE. [Concomitant]
     Active Substance: SPIRONOLACTONE
     Dosage: 100 MG, 1X/DAY

REACTIONS (11)
  - Fibromyalgia [Unknown]
  - Activities of daily living impaired [Not Recovered/Not Resolved]
  - Body mass index increased [Unknown]
  - Nervous system disorder [Unknown]
  - Body temperature decreased [Unknown]
  - Double stranded DNA antibody positive [Unknown]
  - Disease progression [Unknown]
  - Scoliosis [Unknown]
  - False positive investigation result [Unknown]
  - Product use issue [Unknown]
  - Blood pressure diastolic decreased [Unknown]

NARRATIVE: CASE EVENT DATE: 20141215
